FAERS Safety Report 7700537-3 (Version None)
Quarter: 2011Q3

REPORT INFORMATION
  Report Type: 
  Country: None (occurrence: None)
  Receive Date: 20110822
  Receipt Date: 20110808
  Transmission Date: 20111222
  Serious: Yes (Hospitalization, Disabling)
  Sender: FDA-Public Use
  Company Number: FR-CELGENEUS-056-21880-11070038

PATIENT
  Sex: Male
  Weight: 73 kg

DRUGS (8)
  1. BORTEZOMIB [Suspect]
     Indication: MULTIPLE MYELOMA
     Dosage: 2.6 MILLIGRAM
     Route: 041
     Dates: start: 20110316, end: 20110326
  2. BORTEZOMIB [Suspect]
     Dosage: 2.6 MILLIGRAM
     Route: 041
     Dates: start: 20110426, end: 20110503
  3. BORTEZOMIB [Suspect]
     Dosage: 2.6 MILLIGRAM
     Route: 041
     Dates: start: 20110405, end: 20110415
  4. MELPHALAN HYDROCHLORIDE [Concomitant]
     Dosage: HIGH DOSE
     Route: 065
     Dates: start: 20110601, end: 20110601
  5. REVLIMID [Suspect]
     Indication: MULTIPLE MYELOMA
     Dosage: 25 MILLIGRAM
     Route: 048
     Dates: start: 20110326
  6. ARANESP [Concomitant]
     Dosage: 252.53 MICROGRAM/SQ. METER
     Route: 058
     Dates: start: 20110426, end: 20110426
  7. CYCLOPHOSPHAMIDE [Concomitant]
     Dosage: 3000 MILLIGRAM/SQ. METER
     Route: 041
     Dates: start: 20110510, end: 20110510
  8. DEXAMETHASONE [Suspect]
     Indication: MULTIPLE MYELOMA
     Dosage: 10 MILLIGRAM
     Route: 065
     Dates: start: 20110316, end: 20110503

REACTIONS (1)
  - GLIOBLASTOMA [None]
